FAERS Safety Report 17874771 (Version 2)
Quarter: 2020Q3

REPORT INFORMATION
  Report Type: Spontaneous
  Country: US (occurrence: US)
  Receive Date: 20200609
  Receipt Date: 20200713
  Transmission Date: 20201103
  Serious: No
  Sender: FDA-Public Use
  Company Number: US-HORIZON-TEP-0393-2020

PATIENT
  Age: 22 Year
  Sex: Female
  Weight: 124 kg

DRUGS (4)
  1. METHIMAZOLE 10 MG [Concomitant]
     Active Substance: METHIMAZOLE
  2. ATENOLOL. [Concomitant]
     Active Substance: ATENOLOL
  3. NYSTATIN?TRIAMCINOLONE [Concomitant]
  4. TEPEZZA [Suspect]
     Active Substance: TEPROTUMUMAB-TRBW
     Indication: ENDOCRINE OPHTHALMOPATHY
     Dosage: EVERY 3 WEEKS
     Route: 042

REACTIONS (4)
  - Vomiting [Recovered/Resolved]
  - Oligomenorrhoea [Recovered/Resolved]
  - Nausea [Recovered/Resolved]
  - Diarrhoea [Recovered/Resolved]
